FAERS Safety Report 8682728 (Version 3)
Quarter: 2012Q4

REPORT INFORMATION
  Report Type: 
  Country: US (occurrence: US)
  Receive Date: 20120725
  Receipt Date: 20120920
  Transmission Date: 20130627
  Serious: Yes (Other)
  Sender: FDA-Public Use
  Company Number: PHEH2012US014381

PATIENT
  Sex: Female

DRUGS (4)
  1. ILARIS [Suspect]
     Indication: MEVALONATE KINASE DEFICIENCY
     Route: 058
     Dates: start: 201204
  2. COENZYME Q10 [Concomitant]
     Dosage: 60 mg, daily
  3. PREDNISONE [Concomitant]
     Route: 048
  4. TYLENOL [Concomitant]

REACTIONS (3)
  - Loss of consciousness [Not Recovered/Not Resolved]
  - Dizziness [Unknown]
  - Vertigo [Unknown]
